FAERS Safety Report 4586735-9 (Version None)
Quarter: 2005Q1

REPORT INFORMATION
  Report Type: 
  Country: None (occurrence: None)
  Receive Date: 20050214
  Receipt Date: 20050204
  Transmission Date: 20050727
  Serious: Yes (Hospitalization)
  Sender: FDA-Public Use
  Company Number: 2005CG00276

PATIENT
  Age: 91 Year
  Sex: Female

DRUGS (6)
  1. OMEPRAZOLE [Suspect]
     Dosage: 20 MG QD PO
     Route: 048
     Dates: end: 20050114
  2. RENITEC [Suspect]
     Dosage: 5 MG BID PO
     Route: 048
     Dates: end: 20050114
  3. TRIAMTERENE AND HYDROCHLOROTHIAZIDE [Concomitant]
  4. XANAX [Concomitant]
  5. MONICOR L.P. [Concomitant]
  6. SERMION [Concomitant]

REACTIONS (2)
  - ANTIBODY TEST POSITIVE [None]
  - PEMPHIGOID [None]
